FAERS Safety Report 15586535 (Version 1)
Quarter: 2018Q4

REPORT INFORMATION
  Report Type: Report from Study
  Country: DE (occurrence: DE)
  Receive Date: 20181105
  Receipt Date: 20181105
  Transmission Date: 20190205
  Serious: Yes (Death, Other)
  Sender: FDA-Public Use
  Company Number: DE-PURDUE PHARMA-GBR-2018-0061022

PATIENT
  Age: 62 Year
  Sex: Female
  Weight: 73.6 kg

DRUGS (4)
  1. SOLUVIT N                          /01591701/ [Suspect]
     Active Substance: VITAMINS
     Indication: PARENTERAL NUTRITION
     Dosage: UNK
     Route: 065
  2. MORPHINE SULFATE. [Suspect]
     Active Substance: MORPHINE SULFATE
     Indication: BACK PAIN
     Dosage: 20 MG, DAILY
     Route: 058
  3. CORTISONE [Suspect]
     Active Substance: CORTISONE\HYDROCORTISONE
     Indication: PRODUCT USED FOR UNKNOWN INDICATION
     Dosage: UNK
     Route: 065
  4. ADDEL N                            /01412701/ [Suspect]
     Active Substance: ELECTROLYTES NOS\MINERALS
     Indication: PARENTERAL NUTRITION
     Dosage: UNK
     Route: 065

REACTIONS (29)
  - Diarrhoea haemorrhagic [Fatal]
  - Dry mouth [Fatal]
  - Spinal pain [Fatal]
  - Stress [Fatal]
  - Pain [Fatal]
  - Cough [Fatal]
  - Vomiting [Fatal]
  - Dysphagia [Fatal]
  - Decreased appetite [Fatal]
  - Dysgeusia [Fatal]
  - Dyspnoea [Fatal]
  - Death [Fatal]
  - Crying [Fatal]
  - Feeding disorder [Fatal]
  - Sensation of foreign body [Fatal]
  - Blood glucose increased [Fatal]
  - Asthenia [Fatal]
  - Laryngeal discomfort [Fatal]
  - General physical health deterioration [Fatal]
  - Weight decreased [Fatal]
  - Listless [Fatal]
  - Constipation [Fatal]
  - Fatigue [Fatal]
  - Retching [Fatal]
  - Vomiting projectile [Fatal]
  - Thirst decreased [Fatal]
  - Back pain [Fatal]
  - Musculoskeletal pain [Fatal]
  - Nausea [Fatal]
